FAERS Safety Report 6496113-3 (Version None)
Quarter: 2009Q4

REPORT INFORMATION
  Report Type: 
  Country: None (occurrence: None)
  Receive Date: 20091214
  Receipt Date: 20090930
  Transmission Date: 20100525
  Serious: No
  Sender: FDA-Public Use
  Company Number: US-BRISTOL-MYERS SQUIBB COMPANY-14801351

PATIENT
  Age: 77 Year
  Sex: Female
  Weight: 49 kg

DRUGS (6)
  1. ABILIFY [Suspect]
     Indication: BIPOLAR DISORDER
     Dosage: STARTED OVER 4 YRS 08AUG09 DOSAGE WAS DECREASED FROM 10MG TO 5MG AND DISCONTINUED ON 19SEP09
     Dates: end: 20090919
  2. ABILIFY [Suspect]
     Indication: DEPRESSION
     Dosage: STARTED OVER 4 YRS 08AUG09 DOSAGE WAS DECREASED FROM 10MG TO 5MG AND DISCONTINUED ON 19SEP09
     Dates: end: 20090919
  3. ZETIA [Concomitant]
  4. ATENOLOL [Concomitant]
  5. RITALIN [Concomitant]
  6. SYNTHROID [Concomitant]

REACTIONS (3)
  - FATIGUE [None]
  - TARDIVE DYSKINESIA [None]
  - TREMOR [None]
